FAERS Safety Report 6763239-6 (Version None)
Quarter: 2010Q2

REPORT INFORMATION
  Report Type: 
  Country: None (occurrence: None)
  Receive Date: 20100610
  Receipt Date: 20100527
  Transmission Date: 20101027
  Serious: Yes (Death)
  Sender: FDA-Public Use
  Company Number: US-ASTRAZENECA-2008UW18537

PATIENT
  Sex: Female

DRUGS (5)
  1. SEROQUEL [Suspect]
     Indication: BIPOLAR DISORDER
     Route: 048
     Dates: start: 20060928
  2. SEROQUEL [Suspect]
     Dosage: 50 MG IN THE MORNING 200 MG  AT NIGHT
     Route: 048
  3. TRILEPTAL [Concomitant]
     Indication: BIPOLAR DISORDER
     Route: 048
     Dates: start: 20060928
  4. CLONAZEPAM [Concomitant]
     Dates: end: 20060928
  5. CLONAZEPAM [Concomitant]
     Dosage: 50 MG IN THE MORNING 200 MG  AT NIGHT
     Route: 048

REACTIONS (2)
  - DEATH [None]
  - ILL-DEFINED DISORDER [None]
